FAERS Safety Report 22595783 (Version 2)
Quarter: 2024Q2

REPORT INFORMATION
  Report Type: Spontaneous
  Country: CA (occurrence: CA)
  Receive Date: 20230613
  Receipt Date: 20240514
  Transmission Date: 20240716
  Serious: Yes (Other)
  Sender: FDA-Public Use
  Company Number: CA-FreseniusKabi-FK202308197

PATIENT
  Age: 9 Year
  Sex: Male

DRUGS (24)
  1. ETOPOSIDE [Suspect]
     Active Substance: ETOPOSIDE
     Indication: Acute myeloid leukaemia
     Dosage: FORM OF ADMIN. NOT SPECIFIED?ROA: UNKNOWN
  2. ETOPOSIDE [Suspect]
     Active Substance: ETOPOSIDE
     Dosage: FORM OF ADMIN. NOT SPECIFIED
  3. ETOPOSIDE [Suspect]
     Active Substance: ETOPOSIDE
  4. BUSULFAN [Suspect]
     Active Substance: BUSULFAN
     Indication: Acute myeloid leukaemia
     Dosage: FORM OF ADMIN. NOT SPECIFIED?ROA: UNKNOWN
  5. BUSULFEX [Suspect]
     Active Substance: BUSULFAN
     Indication: Acute myeloid leukaemia
     Dosage: FORM OF ADMIN. SOLUTION INTRAVENOUS?ROA: UNKNOWN
  6. BUSULFEX [Suspect]
     Active Substance: BUSULFAN
     Dosage: FORM OF ADMIN. SOLUTION INTRAVENOUS?ROA: INTRAVENOUS
  7. CYCLOPHOSPHAMIDE [Suspect]
     Active Substance: CYCLOPHOSPHAMIDE
     Indication: Acute myeloid leukaemia
     Dosage: FORM OF ADMIN. NOT SPECIFIED
     Route: 065
  8. CYCLOPHOSPHAMIDE [Suspect]
     Active Substance: CYCLOPHOSPHAMIDE
     Dosage: FORM OF ADMIN. NOT SPECIFIED
  9. CYTARABINE [Suspect]
     Active Substance: CYTARABINE
     Indication: Acute myeloid leukaemia
  10. CYTARABINE [Suspect]
     Active Substance: CYTARABINE
     Dosage: FORM OF ADMIN. POWDER FOR SOLUTION INTRATHECAL, ROA: INTRATHECAL
  11. CYTARABINE [Suspect]
     Active Substance: CYTARABINE
     Dosage: ROA: INTRATHECAL
  12. CYTARABINE [Suspect]
     Active Substance: CYTARABINE
     Dosage: ROA: INTRATHECAL
  13. FILGRASTIM [Suspect]
     Active Substance: FILGRASTIM
     Indication: Acute myeloid leukaemia
  14. FLUDARABINE [Suspect]
     Active Substance: FLUDARABINE PHOSPHATE
     Indication: Acute myeloid leukaemia
     Dosage: ROA: UNKNOWN
  15. FLUDARABINE [Suspect]
     Active Substance: FLUDARABINE PHOSPHATE
  16. NEXAVAR [Suspect]
     Active Substance: SORAFENIB
     Indication: Acute myeloid leukaemia
     Dosage: FOA: TABLET?ROA: UNKNOWN
  17. NEXAVAR [Suspect]
     Active Substance: SORAFENIB
     Dosage: FOA: FILM-COATED TABLET
  18. RYDAPT [Suspect]
     Active Substance: MIDOSTAURIN
     Indication: Acute myeloid leukaemia
     Dosage: FOA:CAPSULE?ROA: ORAL
  19. RYDAPT [Suspect]
     Active Substance: MIDOSTAURIN
     Dosage: FOA:CAPSULE, SOFT?ROA: ORAL
  20. NEXAVAR [Suspect]
     Active Substance: SORAFENIB
     Indication: Acute myeloid leukaemia
     Dosage: ROA: UNKNOWN
  21. THYMOGLOBULIN [Suspect]
     Active Substance: LAPINE T-LYMPHOCYTE IMMUNE GLOBULIN
     Indication: Acute myeloid leukaemia
     Dosage: ROA: INTRAVENOUS?FOA: POWDER FOR SOLUTION INTRAVENOUS
  22. FLUDARABINE PHOSPHATE [Suspect]
     Active Substance: FLUDARABINE PHOSPHATE
     Indication: Acute myeloid leukaemia
  23. DAUNORUBICIN HYDROCHLORIDE [Suspect]
     Active Substance: DAUNORUBICIN HYDROCHLORIDE
     Indication: Acute myeloid leukaemia
  24. DAUNORUBICIN [Suspect]
     Active Substance: DAUNORUBICIN
     Indication: Acute myeloid leukaemia

REACTIONS (8)
  - Lymphadenopathy [Recovered/Resolved with Sequelae]
  - Skin toxicity [Recovered/Resolved with Sequelae]
  - Myelosuppression [Recovered/Resolved with Sequelae]
  - Acute myeloid leukaemia recurrent [Recovered/Resolved with Sequelae]
  - Bone marrow failure [Recovered/Resolved with Sequelae]
  - Drug intolerance [Recovered/Resolved with Sequelae]
  - Malignant neoplasm progression [Recovered/Resolved with Sequelae]
  - Pancytopenia [Recovered/Resolved with Sequelae]
